FAERS Safety Report 22160728 (Version 3)
Quarter: 2023Q2

REPORT INFORMATION
  Report Type: Spontaneous
  Country: AT (occurrence: AT)
  Receive Date: 20230331
  Receipt Date: 20230425
  Transmission Date: 20230721
  Serious: Yes (Other)
  Sender: FDA-Public Use
  Company Number: AT-ROCHE-3271210

PATIENT
  Sex: Male

DRUGS (16)
  1. IMBRUVICA [Suspect]
     Active Substance: IBRUTINIB
     Indication: Mantle cell lymphoma
     Dosage: DRUG SEPARATE DOSAGE NUMBER 1
     Route: 048
     Dates: start: 202206, end: 202207
  2. RITUXIMAB [Suspect]
     Active Substance: RITUXIMAB
     Indication: Mantle cell lymphoma
     Dosage: UNK (SOLUTION FOR INJECTION, DRUG SEPARATE DOSAGE NUMBER 1)?START DATE: 2022
     Route: 058
     Dates: end: 202212
  3. RITUXIMAB [Suspect]
     Active Substance: RITUXIMAB
     Indication: Mantle cell lymphoma
     Dosage: DRUG SEPARATE DOSAGE NUMBER 1
     Route: 058
     Dates: start: 201909, end: 202201
  4. CYTARABINE [Suspect]
     Active Substance: CYTARABINE
     Indication: Mantle cell lymphoma
     Dosage: DRUG SEPARATE DOSAGE NUMBER 1
     Route: 065
  5. CYTARABINE [Suspect]
     Active Substance: CYTARABINE
     Indication: Mantle cell lymphoma
     Route: 065
  6. CYTARABINE [Suspect]
     Active Substance: CYTARABINE
     Indication: Mantle cell lymphoma
     Route: 065
  7. DOXORUBICIN [Suspect]
     Active Substance: DOXORUBICIN
     Indication: Mantle cell lymphoma
     Dosage: DRUG SEPARATE DOSAGE NUMBER 1
     Route: 065
     Dates: start: 201909, end: 202201
  8. CISPLATIN [Suspect]
     Active Substance: CISPLATIN
     Indication: Mantle cell lymphoma
     Dosage: DRUG SEPARATE DOSAGE NUMBER 1
     Route: 065
  9. CISPLATIN [Suspect]
     Active Substance: CISPLATIN
     Indication: Mantle cell lymphoma
     Route: 065
  10. CARMUSTINE [Suspect]
     Active Substance: CARMUSTINE
     Indication: Mantle cell lymphoma
     Dosage: DRUG SEPARATE DOSAGE NUMBER 1
     Route: 065
  11. VENETOCLAX [Suspect]
     Active Substance: VENETOCLAX
     Indication: Mantle cell lymphoma
     Route: 048
     Dates: start: 202206, end: 202207
  12. MELPHALAN [Suspect]
     Active Substance: MELPHALAN
     Indication: Mantle cell lymphoma
     Dosage: DRUG SEPARATE DOSAGE NUMBER 1
     Route: 065
  13. DEXAMETHASONE [Suspect]
     Active Substance: DEXAMETHASONE
     Indication: Mantle cell lymphoma
     Dosage: DRUG SEPARATE DOSAGE NUMBER 1
     Route: 050
  14. PREDNISOLONE [Suspect]
     Active Substance: PREDNISOLONE
     Indication: Mantle cell lymphoma
     Dosage: DRUG SEPARATE DOSAGE NUMBER 1
     Route: 065
     Dates: start: 201909, end: 202201
  15. ETOPOSIDE [Suspect]
     Active Substance: ETOPOSIDE
     Indication: Mantle cell lymphoma
     Dosage: DRUG SEPARATE DOSAGE NUMBER 1
     Route: 065
  16. VINCRISTINE [Suspect]
     Active Substance: VINCRISTINE
     Indication: Mantle cell lymphoma
     Dosage: DRUG SEPARATE DOSAGE NUMBER 1
     Route: 065
     Dates: start: 201909, end: 202201

REACTIONS (4)
  - Mantle cell lymphoma [Unknown]
  - Blood lactate dehydrogenase increased [Unknown]
  - Disease progression [Unknown]
  - Off label use [Unknown]
